FAERS Safety Report 10020716 (Version 1)
Quarter: 2014Q1

REPORT INFORMATION
  Report Type: Spontaneous
  Country: US (occurrence: US)
  Receive Date: 20140319
  Receipt Date: 20140319
  Transmission Date: 20141002
  Serious: Yes (Hospitalization, Other)
  Sender: FDA-Public Use
  Company Number: US-009507513-1403USA007434

PATIENT
  Sex: Male

DRUGS (6)
  1. NASONEX [Suspect]
     Indication: HYPERSENSITIVITY
     Dosage: 100 MICROGRAM, DAILY (ALSO REPORTED AS 2 SPRAYS IN EACH NOSTRIL ONCE DAILY)
     Route: 045
     Dates: start: 2011
  2. NORCO [Concomitant]
     Indication: PAIN
     Dosage: UNK
  3. SOMA [Concomitant]
     Indication: MUSCLE SPASMS
     Dosage: UNK
  4. ACIPHEX [Concomitant]
     Indication: GASTROOESOPHAGEAL REFLUX DISEASE
     Dosage: UNK
  5. LEXAPRO [Concomitant]
     Dosage: 20 MG, DAILY
  6. KLONOPIN [Concomitant]
     Indication: CONVULSION
     Dosage: UNK

REACTIONS (8)
  - Convulsion [Unknown]
  - Rhinorrhoea [Not Recovered/Not Resolved]
  - Sneezing [Not Recovered/Not Resolved]
  - Dysphonia [Not Recovered/Not Resolved]
  - Productive cough [Not Recovered/Not Resolved]
  - Cough [Not Recovered/Not Resolved]
  - Incorrect dose administered [Unknown]
  - Product quality issue [Unknown]
